FAERS Safety Report 9542059 (Version 2)
Quarter: 2013Q4

REPORT INFORMATION
  Report Type: Spontaneous
  Country: GB (occurrence: GB)
  Receive Date: 20130923
  Receipt Date: 20131120
  Transmission Date: 20140711
  Serious: Yes (Other)
  Sender: FDA-Public Use
  Company Number: GB-IPSEN BIOPHARMACEUTICALS, INC.-2013-4139

PATIENT
  Sex: Female

DRUGS (4)
  1. AZZALURE [Suspect]
     Indication: SKIN WRINKLING
     Dosage: 70 UNITS
     Route: 030
     Dates: start: 20130911, end: 20130911
  2. AZZALURE [Suspect]
     Indication: SKIN WRINKLING
  3. AZZALURE [Suspect]
     Indication: OFF LABEL USE
  4. CITALOPRAM [Concomitant]
     Indication: DEPRESSION
     Dosage: NOT REPORTED
     Route: 065

REACTIONS (7)
  - Atrioventricular block first degree [Unknown]
  - Hypertension [Unknown]
  - Abdominal discomfort [Unknown]
  - Panic attack [Unknown]
  - Dizziness [Unknown]
  - Syncope [Unknown]
  - Overdose [Unknown]
